FAERS Safety Report 7962610-4 (Version None)
Quarter: 2011Q4

REPORT INFORMATION
  Report Type: 
  Country: None (occurrence: None)
  Receive Date: 20111207
  Receipt Date: 20111202
  Transmission Date: 20120403
  Serious: Yes (Other)
  Sender: FDA-Public Use
  Company Number: US-RB-030938-11

PATIENT
  Age: 38 Year
  Sex: Female

DRUGS (3)
  1. MUCINEX DM [Suspect]
     Indication: COUGH
     Dosage: TOOK ONE TIME ONLY ON ??/NOV/2011 SOMETIME IN THE LAST WEEK
     Route: 048
  2. MUCINEX DM [Suspect]
     Indication: RESPIRATORY TRACT CONGESTION
     Dosage: TOOK TWO DOSES ONLY ON 27/NOV/2011
     Route: 048
  3. ZOLOFT [Suspect]
     Indication: PRODUCT USED FOR UNKNOWN INDICATION

REACTIONS (5)
  - SEROTONIN SYNDROME [None]
  - HEADACHE [None]
  - BLOOD PRESSURE INCREASED [None]
  - VISION BLURRED [None]
  - DRUG INTERACTION [None]
